FAERS Safety Report 8615525-2 (Version None)
Quarter: 2012Q3

REPORT INFORMATION
  Report Type: 
  Country: None (occurrence: None)
  Receive Date: 20120823
  Receipt Date: 20120820
  Transmission Date: 20120928
  Serious: Yes (Other)
  Sender: FDA-Public Use
  Company Number: US-PFIZER INC-2012204246

PATIENT
  Age: 48 Year
  Sex: Female
  Weight: 58.957 kg

DRUGS (1)
  1. DILANTIN [Suspect]
     Indication: EPILEPSY
     Dosage: UNK
     Route: 048

REACTIONS (2)
  - CAROTID ARTERY THROMBOSIS [None]
  - BLOOD CHOLESTEROL INCREASED [None]
